FAERS Safety Report 6495175-7 (Version None)
Quarter: 2009Q4

REPORT INFORMATION
  Report Type: 
  Country: None (occurrence: None)
  Receive Date: 20091214
  Receipt Date: 20090508
  Transmission Date: 20100525
  Serious: No
  Sender: FDA-Public Use
  Company Number: US-BRISTOL-MYERS SQUIBB COMPANY-14617104

PATIENT
  Age: 40 Year
  Sex: Female
  Weight: 68 kg

DRUGS (5)
  1. ABILIFY [Suspect]
     Indication: SCHIZOPHRENIA, PARANOID TYPE
     Dosage: STARTED WITH 5 MG + INCREASED TO 10 MG + THEN TO 20 MG. INTERRUPTED + STARTED 20 MG QD 1 WEEK AGO
     Route: 048
     Dates: start: 20080101
  2. DEPAKOTE [Concomitant]
  3. HYDROCODONE BITARTRATE [Concomitant]
  4. ACETAMINOPHEN [Concomitant]
  5. RANITIDINE [Concomitant]

REACTIONS (1)
  - RETINAL OEDEMA [None]
